FAERS Safety Report 10720299 (Version 1)
Quarter: 2015Q1

REPORT INFORMATION
  Report Type: Spontaneous
  Country: US (occurrence: US)
  Receive Date: 20150119
  Receipt Date: 20150119
  Transmission Date: 20150721
  Serious: No
  Sender: FDA-Public Use
  Company Number: US-TARO-2013P1021617

PATIENT
  Age: 71 Year
  Sex: Female
  Weight: 56.7 kg

DRUGS (6)
  1. TRIAMCINOLONE ACETONIDE CREAM USP 0.1% [Suspect]
     Active Substance: TRIAMCINOLONE ACETONIDE
     Indication: DERMATITIS
     Dosage: QD
     Route: 061
     Dates: start: 201311, end: 20131129
  2. TIKOSYN [Concomitant]
     Active Substance: DOFETILIDE
  3. COUMADIN [Concomitant]
     Active Substance: WARFARIN SODIUM
  4. GENERIC OSTEOPOROSIS MEDICATION [Concomitant]
  5. UNSPECIFIED HEART MEDICINE [Concomitant]
  6. SIMVASTATIN. [Concomitant]
     Active Substance: SIMVASTATIN

REACTIONS (8)
  - Dry skin [Recovering/Resolving]
  - Skin irritation [Recovering/Resolving]
  - Ocular hyperaemia [Recovered/Resolved]
  - Skin wrinkling [Recovering/Resolving]
  - Pruritus [Recovering/Resolving]
  - Exposure via direct contact [Unknown]
  - Skin exfoliation [Recovering/Resolving]
  - Pain of skin [Recovering/Resolving]

NARRATIVE: CASE EVENT DATE: 201311
